FAERS Safety Report 6379087-5 (Version None)
Quarter: 2009Q3

REPORT INFORMATION
  Report Type: 
  Country: None (occurrence: None)
  Receive Date: 20090928
  Receipt Date: 20090916
  Transmission Date: 20100115
  Serious: Yes (Other)
  Sender: FDA-Public Use
  Company Number: US-BAYER-200932883GPV

PATIENT
  Age: 14 Year
  Sex: Female
  Weight: 48 kg

DRUGS (2)
  1. SOTALOL [Suspect]
     Indication: ATRIAL TACHYCARDIA
     Dosage: UNIT DOSE: 80 MG
     Route: 048
  2. SOTALOL [Suspect]
     Dosage: MAINTENANCE DOSE

REACTIONS (2)
  - ATRIOVENTRICULAR BLOCK COMPLETE [None]
  - SINUS BRADYCARDIA [None]
